FAERS Safety Report 23230032 (Version 2)
Quarter: 2023Q4

REPORT INFORMATION
  Report Type: Report from Study
  Country: US (occurrence: None)
  Receive Date: 20231127
  Receipt Date: 20231201
  Transmission Date: 20240110
  Serious: Yes (Hospitalization, Other)
  Sender: FDA-Public Use
  Company Number: US-ROCHE-3463638

PATIENT
  Age: 87 Year
  Sex: Male
  Weight: 87.7 kg

DRUGS (4)
  1. ATEZOLIZUMAB [Suspect]
     Active Substance: ATEZOLIZUMAB
     Indication: Adenocarcinoma of colon
     Dosage: ON 03/OCT/2023, RECEIVED THE MOST RECENT DOSE OF 840 MG PRIOR TO SAE. (CYCLE 18 DAY 1)
     Route: 041
     Dates: start: 20230118
  2. OXALIPLATIN [Suspect]
     Active Substance: OXALIPLATIN
     Indication: Adenocarcinoma of colon
     Dosage: 85MG/M2
     Route: 042
     Dates: start: 20230118, end: 20230705
  3. LEUCOVORIN CALCIUM [Suspect]
     Active Substance: LEUCOVORIN CALCIUM
     Indication: Adenocarcinoma of colon
     Dosage: 400MG/M2
     Route: 042
     Dates: start: 20230118, end: 20230705
  4. FLUOROURACIL [Suspect]
     Active Substance: FLUOROURACIL
     Indication: Adenocarcinoma of colon
     Dosage: 400MG/M2 ON DAY 1 FOLLOWED BY 2400MG/M2 OVER 46 HOURS DAYS 1-3
     Route: 042
     Dates: start: 20230118, end: 20230705

REACTIONS (4)
  - Presyncope [Not Recovered/Not Resolved]
  - Confusional state [Not Recovered/Not Resolved]
  - Adrenal insufficiency [Not Recovered/Not Resolved]
  - Fatigue [Unknown]

NARRATIVE: CASE EVENT DATE: 20231019
